FAERS Safety Report 21075130 (Version 3)
Quarter: 2025Q3

REPORT INFORMATION
  Report Type: Spontaneous
  Country: US (occurrence: US)
  Receive Date: 20220713
  Receipt Date: 20250710
  Transmission Date: 20251020
  Serious: Yes (Hospitalization, Other)
  Sender: JAZZ
  Company Number: US-JAZZ-2022-US-012187

PATIENT
  Age: 1 Year
  Sex: Female
  Weight: 13.605 kg

DRUGS (5)
  1. EPIDIOLEX [Suspect]
     Active Substance: CANNABIDIOL
     Indication: Epilepsy
     Dosage: 0.75 MILLILITER, BID
     Route: 048
     Dates: start: 202204
  2. EPIDIOLEX [Suspect]
     Active Substance: CANNABIDIOL
     Indication: Severe myoclonic epilepsy of infancy
     Dosage: 0.25 MILLILITER, BID
     Route: 048
     Dates: start: 20220422
  3. EPIDIOLEX [Suspect]
     Active Substance: CANNABIDIOL
     Dosage: 0.25 MILLILITER, BID
     Route: 048
     Dates: start: 20220518
  4. CLOBAZAM [Concomitant]
     Active Substance: CLOBAZAM
     Indication: Product used for unknown indication
  5. CLOBAZAM [Concomitant]
     Active Substance: CLOBAZAM

REACTIONS (3)
  - Atonic seizures [Recovered/Resolved]
  - COVID-19 [Recovered/Resolved]
  - Seizure [Recovered/Resolved]

NARRATIVE: CASE EVENT DATE: 20220411
